FAERS Safety Report 14852254 (Version 2)
Quarter: 2018Q3

REPORT INFORMATION
  Report Type: Spontaneous
  Country: US (occurrence: US)
  Receive Date: 20180507
  Receipt Date: 20180807
  Transmission Date: 20181010
  Serious: No
  Sender: FDA-Public Use
  Company Number: US-PFIZER INC-2018182492

PATIENT
  Age: 48 Year
  Sex: Female

DRUGS (2)
  1. TAXOTERE [Suspect]
     Active Substance: DOCETAXEL
     Indication: BREAST CANCER
     Dosage: UNK, EVERY THREE WEEKS (6 CYCLES)
     Dates: start: 20041117, end: 20050401
  2. DOCETAXEL. [Suspect]
     Active Substance: DOCETAXEL
     Indication: BREAST CANCER
     Dosage: UNK, EVERY THREE WEEKS (6 CYCLES)
     Dates: start: 20041117, end: 20050401

REACTIONS (1)
  - Alopecia [Not Recovered/Not Resolved]
